FAERS Safety Report 20340303 (Version 1)
Quarter: 2022Q1

REPORT INFORMATION
  Report Type: Spontaneous
  Country: US (occurrence: US)
  Receive Date: 20220117
  Receipt Date: 20220117
  Transmission Date: 20220424
  Serious: Yes (Other)
  Sender: FDA-Public Use
  Company Number: US-JNJFOC-20220117647

PATIENT
  Age: 53 Year
  Sex: Male

DRUGS (1)
  1. INVOKAMET [Suspect]
     Active Substance: CANAGLIFLOZIN\METFORMIN HYDROCHLORIDE
     Indication: Product used for unknown indication
     Dosage: 150 MG-1000 MG
     Route: 048

REACTIONS (5)
  - Osteomyelitis [Unknown]
  - Foreign body [Unknown]
  - Abscess limb [Unknown]
  - Pathological fracture [Unknown]
  - Toe amputation [Unknown]

NARRATIVE: CASE EVENT DATE: 20190624
